FAERS Safety Report 16653944 (Version 1)
Quarter: 2019Q3

REPORT INFORMATION
  Report Type: Spontaneous
  Country: US (occurrence: US)
  Receive Date: 20190731
  Receipt Date: 20190731
  Transmission Date: 20191004
  Serious: Yes (Other)
  Sender: FDA-Public Use
  Company Number: US-SA-2019SA206268

PATIENT
  Sex: Female

DRUGS (1)
  1. DULCOLAX LIQUID CHERRY (MAGNESIUM HYDROXIDE) [Suspect]
     Active Substance: MAGNESIUM HYDROXIDE
     Dosage: 40 ML
     Dates: start: 20190718

REACTIONS (5)
  - Urticaria [Recovering/Resolving]
  - Anaphylactic reaction [Unknown]
  - Swollen tongue [Recovering/Resolving]
  - Urticaria [Unknown]
  - Dyspnoea [Unknown]

NARRATIVE: CASE EVENT DATE: 20190718
